FAERS Safety Report 4364866-6 (Version None)
Quarter: 2004Q2

REPORT INFORMATION
  Report Type: 
  Country: None (occurrence: None)
  Receive Date: 20040521
  Receipt Date: 20040503
  Transmission Date: 20050107
  Serious: Yes (Hospitalization)
  Sender: FDA-Public Use
  Company Number: US_0405102922

PATIENT
  Age: 73 Year
  Sex: Male
  Weight: 85 kg

DRUGS (8)
  1. GEMCITABINE HYDROCHLORIDE-IV (GEMCITABINE) [Suspect]
     Indication: NON-SMALL CELL LUNG CANCER
     Dosage: 2000 MG
     Dates: start: 20040224
  2. PACLITAXEL [Suspect]
     Indication: NON-SMALL CELL LUNG CANCER
     Dosage: 400 MG
     Dates: start: 20040224
  3. PERCOCET [Concomitant]
  4. LISINOPRIL [Concomitant]
  5. AMLODIPINE [Concomitant]
  6. NEXIUM [Concomitant]
  7. PIROXICAM [Concomitant]
  8. PROCHLORPERAZINE [Concomitant]

REACTIONS (20)
  - ARTHRALGIA [None]
  - BLOOD UREA INCREASED [None]
  - CELLULITIS [None]
  - CHEST PAIN [None]
  - CRACKLES LUNG [None]
  - DECUBITUS ULCER [None]
  - ELECTROCARDIOGRAM T WAVE INVERSION [None]
  - FOLLICULITIS [None]
  - GASTRIC ULCER [None]
  - HAEMATEMESIS [None]
  - HAEMATOCRIT DECREASED [None]
  - HAEMOGLOBIN DECREASED [None]
  - HAEMORRHOIDS [None]
  - HICCUPS [None]
  - INTERNATIONAL NORMALISED RATIO DECREASED [None]
  - LETHARGY [None]
  - MYOCARDIAL ISCHAEMIA [None]
  - OESOPHAGITIS ULCERATIVE [None]
  - PYREXIA [None]
  - RASH [None]
